FAERS Safety Report 7026494-3 (Version None)
Quarter: 2010Q4

REPORT INFORMATION
  Report Type: 
  Country: None (occurrence: None)
  Receive Date: 20101004
  Receipt Date: 20100929
  Transmission Date: 20110411
  Serious: Yes (Hospitalization, Disabling)
  Sender: FDA-Public Use
  Company Number: US-PFIZER INC-2010123744

PATIENT
  Sex: Female

DRUGS (6)
  1. ARGATROBAN [Suspect]
     Indication: HEPARIN-INDUCED THROMBOCYTOPENIA
     Dosage: 5.2 MCG/KG/MIN
     Route: 042
     Dates: start: 20100908
  2. DARVOCET [Concomitant]
  3. COLACE [Concomitant]
  4. ATENOLOL [Concomitant]
  5. EFFEXOR [Concomitant]
  6. IRON SULFATETHIAMIN COMPOUND TAB [Suspect]

REACTIONS (1)
  - DRUG INEFFECTIVE [None]
